FAERS Safety Report 12780839 (Version 1)
Quarter: 2016Q3

REPORT INFORMATION
  Report Type: Spontaneous
  Country: NL (occurrence: NL)
  Receive Date: 20160926
  Receipt Date: 20160926
  Transmission Date: 20161109
  Serious: Yes (Disabling, Other)
  Sender: FDA-Public Use
  Company Number: NL-ABBVIE-16K-114-1731591-00

PATIENT
  Sex: Female

DRUGS (1)
  1. HUMIRA [Suspect]
     Active Substance: ADALIMUMAB
     Indication: UVEITIS
     Route: 058
     Dates: start: 2011

REACTIONS (13)
  - Eye pain [Not Recovered/Not Resolved]
  - Anaemia [Unknown]
  - Emotional disorder [Unknown]
  - Night sweats [Unknown]
  - Activities of daily living impaired [Not Recovered/Not Resolved]
  - Goitre [Unknown]
  - Visual impairment [Not Recovered/Not Resolved]
  - Night sweats [Not Recovered/Not Resolved]
  - Photophobia [Not Recovered/Not Resolved]
  - Glaucoma [Unknown]
  - Lacrimation increased [Not Recovered/Not Resolved]
  - Sarcoidosis [Unknown]
  - Fatigue [Not Recovered/Not Resolved]

NARRATIVE: CASE EVENT DATE: 2015
